FAERS Safety Report 12632587 (Version 2)
Quarter: 2016Q3

REPORT INFORMATION
  Report Type: Spontaneous
  Country: US (occurrence: US)
  Receive Date: 20160808
  Receipt Date: 20160808
  Transmission Date: 20161109
  Serious: No
  Sender: FDA-Public Use
  Company Number: US-BEH-2015056125

PATIENT
  Sex: Female
  Weight: 87 kg

DRUGS (14)
  1. HIZENTRA [Suspect]
     Active Substance: HUMAN IMMUNOGLOBULIN G
     Dosage: 10GM 50 ML VIALS
  2. DIPHENHYDRAMINE. [Concomitant]
     Active Substance: DIPHENHYDRAMINE
  3. VITAMIN D [Concomitant]
     Active Substance: CHOLECALCIFEROL
  4. HIZENTRA [Suspect]
     Active Substance: HUMAN IMMUNOGLOBULIN G
     Route: 058
  5. ATENOLOL. [Concomitant]
     Active Substance: ATENOLOL
  6. ALBUTEROL. [Concomitant]
     Active Substance: ALBUTEROL
  7. ZYRTEC [Concomitant]
     Active Substance: CETIRIZINE HYDROCHLORIDE
  8. ACETAMINOPHEN. [Concomitant]
     Active Substance: ACETAMINOPHEN
  9. LIDOCAINE. [Concomitant]
     Active Substance: LIDOCAINE
  10. MULTIVITAMINS [Concomitant]
     Active Substance: VITAMINS
  11. HIZENTRA [Suspect]
     Active Substance: HUMAN IMMUNOGLOBULIN G
     Dosage: 2 GM 10ML
  12. EPIPEN [Concomitant]
     Active Substance: EPINEPHRINE
  13. HIZENTRA [Suspect]
     Active Substance: HUMAN IMMUNOGLOBULIN G
     Indication: IMMUNODEFICIENCY COMMON VARIABLE
     Dosage: STREEWNGTH OF DOSAGE FORM 1GM 5 ML;
  14. NAPROXEN. [Concomitant]
     Active Substance: NAPROXEN

REACTIONS (2)
  - Swelling [Recovered/Resolved]
  - Local reaction [Recovered/Resolved]
